FAERS Safety Report 14902306 (Version 4)
Quarter: 2021Q2

REPORT INFORMATION
  Report Type: Report from Study
  Country: US (occurrence: US)
  Receive Date: 20180516
  Receipt Date: 20210628
  Transmission Date: 20210716
  Serious: Yes (Hospitalization, Other)
  Sender: FDA-Public Use
  Company Number: US-SHIRE-US201818468

PATIENT
  Age: 61 Year
  Sex: Male

DRUGS (4)
  1. VELAGLUCERASE ALFA [Suspect]
     Active Substance: VELAGLUCERASE ALFA
     Indication: GAUCHER^S DISEASE
     Dosage: 8 DOSAGE FORM, 1/WEEK
     Route: 042
     Dates: start: 20100629
  2. MORPHINE [Concomitant]
     Active Substance: MORPHINE
     Dosage: UNK
  3. VELAGLUCERASE ALFA [Suspect]
     Active Substance: VELAGLUCERASE ALFA
     Dosage: UNK, 2/WEEK
     Route: 042
  4. VALIUM [Concomitant]
     Active Substance: DIAZEPAM

REACTIONS (5)
  - Neoplasm malignant [Not Recovered/Not Resolved]
  - Diverticulitis [Recovered/Resolved]
  - Abscess [Recovered/Resolved]
  - Incoherent [Not Recovered/Not Resolved]
  - Back pain [Not Recovered/Not Resolved]

NARRATIVE: CASE EVENT DATE: 20180503
